FAERS Safety Report 8550218-1 (Version None)
Quarter: 2012Q3

REPORT INFORMATION
  Report Type: 
  Country: None (occurrence: None)
  Receive Date: 20120730
  Receipt Date: 20110421
  Transmission Date: 20120928
  Serious: No
  Sender: FDA-Public Use
  Company Number: US-ALLERGAN-1105620US

PATIENT
  Age: 93 Year
  Sex: Female

DRUGS (1)
  1. LUMIGAN [Suspect]
     Indication: GLAUCOMA
     Dosage: 1 DROP INSTILLED EACH EVENING TO EACH EYE
     Route: 047
     Dates: end: 20110415

REACTIONS (2)
  - EYE PAIN [None]
  - HYPERSENSITIVITY [None]
